FAERS Safety Report 6112796-1 (Version None)
Quarter: 2009Q1

REPORT INFORMATION
  Report Type: 
  Country: None (occurrence: None)
  Receive Date: 20090312
  Receipt Date: 20090302
  Transmission Date: 20090719
  Serious: Yes (Hospitalization)
  Sender: FDA-Public Use
  Company Number: US-BIOGENIDEC-2009BI006742

PATIENT
  Age: 43 Year
  Sex: Female

DRUGS (1)
  1. AVONEX [Suspect]
     Indication: MULTIPLE SCLEROSIS
     Route: 030
     Dates: start: 20080823

REACTIONS (5)
  - CLOSTRIDIUM DIFFICILE COLITIS [None]
  - FALL [None]
  - MULTIPLE SCLEROSIS RELAPSE [None]
  - STREPTOCOCCAL ABSCESS [None]
  - WOUND [None]
